FAERS Safety Report 7884989-4 (Version None)
Quarter: 2011Q4

REPORT INFORMATION
  Report Type: 
  Country: None (occurrence: None)
  Receive Date: 20111102
  Receipt Date: 20111026
  Transmission Date: 20120403
  Serious: Yes (Disabling)
  Sender: FDA-Public Use
  Company Number: US-B.I. PHARMACEUTICALS,INC./RIDGEFIELD-2011-BP-22469BP

PATIENT
  Sex: Female

DRUGS (9)
  1. CLONIDINE [Concomitant]
     Indication: HYPERTENSION
     Dosage: 0.4 MG
     Route: 048
     Dates: start: 20040101
  2. METOPROLOL TARTRATE [Concomitant]
     Indication: ATRIAL FIBRILLATION
     Dosage: 150 MG
     Route: 048
     Dates: start: 20040101
  3. ASPIRIN [Concomitant]
     Indication: PROPHYLAXIS
     Dosage: 81 MG
     Route: 048
     Dates: start: 20010101
  4. GLYBURIDE [Concomitant]
     Indication: DIABETES MELLITUS
     Dosage: 6 MG
     Route: 048
     Dates: start: 19960101
  5. OXYBUTYNIN [Concomitant]
     Indication: BLADDER DISORDER
     Dosage: 5 MG
     Route: 048
     Dates: start: 20010101
  6. PRADAXA [Suspect]
     Indication: ATRIAL FIBRILLATION
     Dosage: 300 MG
     Route: 048
     Dates: start: 20101101
  7. LISINOPRIL [Concomitant]
     Indication: HYPERTENSION
     Dosage: 30 MG
     Route: 048
     Dates: start: 20010101
  8. KLOR-CON [Concomitant]
     Indication: BLOOD POTASSIUM DECREASED
     Dosage: 24 MEQ
     Route: 048
     Dates: start: 20010101
  9. FUROSEMIDE [Concomitant]
     Indication: FLUID RETENTION
     Dosage: 40 MG
     Route: 048
     Dates: start: 20010101

REACTIONS (4)
  - THROMBOSIS [None]
  - HAEMORRHAGE [None]
  - RETINAL VEIN OCCLUSION [None]
  - BLINDNESS UNILATERAL [None]
